FAERS Safety Report 7968126-3 (Version None)
Quarter: 2011Q4

REPORT INFORMATION
  Report Type: 
  Country: None (occurrence: None)
  Receive Date: 20111209
  Receipt Date: 20111127
  Transmission Date: 20120403
  Serious: Yes (Other)
  Sender: FDA-Public Use
  Company Number: PHHY2011GR103898

PATIENT
  Age: 27 Year
  Sex: Female

DRUGS (4)
  1. BASILIXIMAB [Suspect]
     Indication: RENAL TRANSPLANT
  2. MYCOPHENOLATE MOFETIL [Concomitant]
     Indication: RENAL TRANSPLANT
  3. METHYLPREDNISOLONE [Concomitant]
     Indication: RENAL TRANSPLANT
  4. CYCLOSPORINE [Suspect]
     Indication: RENAL TRANSPLANT

REACTIONS (9)
  - ANURIA [None]
  - URINE OUTPUT DECREASED [None]
  - KIDNEY TRANSPLANT REJECTION [None]
  - ARTERITIS [None]
  - LYMPHOCYTIC INFILTRATION [None]
  - RENAL GRAFT LOSS [None]
  - COMPLICATIONS OF TRANSPLANTED KIDNEY [None]
  - RENAL VEIN THROMBOSIS [None]
  - ABDOMINAL PAIN [None]
